APPROVED DRUG PRODUCT: BUNAVAIL
Active Ingredient: BUPRENORPHINE HYDROCHLORIDE; NALOXONE HYDROCHLORIDE
Strength: EQ 4.2MG BASE;EQ 0.7MG BASE
Dosage Form/Route: FILM;BUCCAL
Application: N205637 | Product #002
Applicant: BIODELIVERY SCIENCES INTERNATIONAL INC
Approved: Jun 6, 2014 | RLD: Yes | RS: No | Type: DISCN

PATENTS:
Patent 8147866 | Expires: Jul 23, 2027
Patent 9655843 | Expires: Jul 23, 2027
Patent 9522188 | Expires: Apr 24, 2035
Patent 8703177 | Expires: Aug 20, 2032